FAERS Safety Report 10074189 (Version 3)
Quarter: 2014Q2

REPORT INFORMATION
  Report Type: Spontaneous
  Country: US (occurrence: US)
  Receive Date: 20140411
  Receipt Date: 20140430
  Transmission Date: 20141212
  Serious: Yes (Other)
  Sender: FDA-Public Use
  Company Number: US-LUNDBECK-DKLU1098893

PATIENT
  Age: 46 Year
  Sex: Female

DRUGS (13)
  1. SABRIL     (TABLET) [Suspect]
     Indication: EPILEPSY
     Route: 048
     Dates: start: 2011
  2. SABRIL     (TABLET) [Suspect]
     Indication: TEMPORAL LOBE EPILEPSY
     Route: 048
     Dates: start: 20110711, end: 20140408
  3. SABRIL     (TABLET) [Suspect]
     Indication: EPILEPSY
  4. SABRIL     (TABLET) [Suspect]
     Indication: NERVOUS SYSTEM DISORDER
  5. BANZEL [Suspect]
     Indication: PRODUCT USED FOR UNKNOWN INDICATION
  6. ONFI [Concomitant]
     Indication: PRODUCT USED FOR UNKNOWN INDICATION
  7. KEPPRA [Concomitant]
     Indication: PRODUCT USED FOR UNKNOWN INDICATION
  8. FELBAMATE [Concomitant]
     Indication: PRODUCT USED FOR UNKNOWN INDICATION
  9. FELBAMATE [Concomitant]
  10. FELBAMATE [Concomitant]
  11. DILANTIN [Concomitant]
     Indication: PRODUCT USED FOR UNKNOWN INDICATION
  12. DILANTIN [Concomitant]
  13. DILANTIN [Concomitant]

REACTIONS (4)
  - Optic atrophy [Not Recovered/Not Resolved]
  - Visual field defect [Not Recovered/Not Resolved]
  - Visual impairment [Not Recovered/Not Resolved]
  - Convulsion [Recovered/Resolved]
